FAERS Safety Report 10050834 (Version 1)
Quarter: 2014Q2

REPORT INFORMATION
  Report Type: Spontaneous
  Country: US (occurrence: US)
  Receive Date: 20140401
  Receipt Date: 20140401
  Transmission Date: 20141212
  Serious: No
  Sender: FDA-Public Use
  Company Number: US-ASTRAZENECA-2014SE05909

PATIENT
  Age: 63 Year
  Sex: Male
  Weight: 72.6 kg

DRUGS (2)
  1. NEXIUM [Suspect]
     Indication: BARRETT^S OESOPHAGUS
     Route: 048
     Dates: start: 2008
  2. PRILOSEC - OTC [Suspect]
     Indication: BARRETT^S OESOPHAGUS
     Route: 048
     Dates: start: 2007, end: 2007

REACTIONS (4)
  - Arthritis [Unknown]
  - Nausea [Recovered/Resolved]
  - Intentional product misuse [Unknown]
  - Intentional product misuse [Unknown]
